FAERS Safety Report 6855003-4 (Version None)
Quarter: 2010Q3

REPORT INFORMATION
  Report Type: 
  Country: None (occurrence: None)
  Receive Date: 20100717
  Receipt Date: 20080410
  Transmission Date: 20110219
  Serious: No
  Sender: FDA-Public Use
  Company Number: US-PFIZER INC-2007098114

PATIENT
  Sex: Male
  Weight: 108.9 kg

DRUGS (2)
  1. CHANTIX [Suspect]
     Indication: SMOKING CESSATION THERAPY
     Dates: start: 20071102, end: 20071115
  2. TRIAMTERENE [Concomitant]

REACTIONS (6)
  - ANGER [None]
  - ANXIETY [None]
  - DEPRESSION [None]
  - DRUG INEFFECTIVE [None]
  - FRUSTRATION [None]
  - NIGHTMARE [None]
